FAERS Safety Report 5487592-9 (Version None)
Quarter: 2007Q4

REPORT INFORMATION
  Report Type: 
  Country: None (occurrence: None)
  Receive Date: 20071016
  Receipt Date: 20071008
  Transmission Date: 20080405
  Serious: Yes (Hospitalization)
  Sender: FDA-Public Use
  Company Number: US-ELI_LILLY_AND_COMPANY-US200710001947

PATIENT
  Sex: Female

DRUGS (1)
  1. HUMALOG [Suspect]
     Indication: DIABETES MELLITUS

REACTIONS (5)
  - BACK PAIN [None]
  - DEPRESSION [None]
  - FALL [None]
  - INTERVERTEBRAL DISC PROTRUSION [None]
  - NEURALGIA [None]
